FAERS Safety Report 8798656 (Version 1)
Quarter: 2012Q4

REPORT INFORMATION
  Report Type: 
  Country: CH (occurrence: CH)
  Receive Date: 20120920
  Receipt Date: 20120920
  Transmission Date: 20130627
  Serious: Yes (Hospitalization)
  Sender: FDA-Public Use
  Company Number: CH-PFIZER INC-2012230888

PATIENT
  Age: 61 Year
  Sex: Male
  Weight: 90 kg

DRUGS (18)
  1. LYRICA [Suspect]
     Dosage: 75 mg, 3x/day
     Route: 048
  2. TEMESTA [Suspect]
     Dosage: 1 mg, 1x/day
     Route: 048
  3. LITHIOFOR [Interacting]
     Dosage: 660 mg, 2x/day
     Route: 048
  4. IRFEN [Suspect]
     Dosage: 600 mg, 3x/day
     Route: 048
     Dates: end: 20120706
  5. OXYCONTIN [Suspect]
     Dosage: 10 mg, 2x/day
     Route: 048
  6. REMERON [Suspect]
     Dosage: 45 mg, 1x/day
     Route: 048
  7. ATACAND PLUS [Interacting]
     Dosage: half tablet daily of 16/12.5 mg
     Route: 048
  8. CYMBALTA [Interacting]
     Dosage: 60 mg, 2x/day
     Route: 048
  9. ASPIRIN CARDIO [Interacting]
     Dosage: 100 mg, 1x/day
     Route: 048
  10. BECOZYME FORTE [Concomitant]
     Dosage: 1 DF, 1x/day
     Route: 048
  11. CEFUROXIM [Concomitant]
     Dosage: 500 mg, 2x/day
     Route: 048
  12. DAFALGAN [Concomitant]
     Dosage: 1 g, 4x/day
     Route: 048
  13. DULCOLAX [Concomitant]
     Dosage: 5 mg, 1x/day
     Route: 048
  14. ELTROXIN [Concomitant]
     Dosage: 50 ug, 1x/day
     Route: 048
  15. KETESSE [Concomitant]
     Dosage: 25 mg, 2x/day
     Route: 048
  16. MAGNESIOCARD [Concomitant]
     Dosage: 5 mg, 2x/day
     Route: 048
  17. PANTOZOL [Concomitant]
     Dosage: 20 mg, 2x/day
     Route: 048
  18. REDORMIN [Concomitant]
     Dosage: 500 mg, 1x/day
     Route: 048

REACTIONS (9)
  - Drug level increased [Recovered/Resolved]
  - Ataxia [Recovered/Resolved]
  - Somnolence [Recovered/Resolved]
  - Muscular weakness [Recovered/Resolved]
  - Renal impairment [Recovered/Resolved]
  - Drug interaction [Recovered/Resolved]
  - Tremor [Recovered/Resolved]
  - Renal impairment [None]
  - Toxicity to various agents [None]
